FAERS Safety Report 8453528-1 (Version None)
Quarter: 2012Q2

REPORT INFORMATION
  Report Type: 
  Country: None (occurrence: None)
  Receive Date: 20120620
  Receipt Date: 20120522
  Transmission Date: 20120825
  Serious: No
  Sender: FDA-Public Use
  Company Number: US-VERTEX PHARMACEUTICALS INC.-AE-2012-007575

PATIENT
  Sex: Male
  Weight: 118.04 kg

DRUGS (5)
  1. RIBAVIRIN [Concomitant]
     Indication: HEPATITIS C
     Route: 048
     Dates: start: 20120521
  2. COZAAR [Concomitant]
     Indication: HYPERTENSION
  3. GLIPAZIDE [Concomitant]
     Indication: DIABETES MELLITUS
  4. INCIVEK [Suspect]
     Indication: HEPATITIS C
     Route: 048
     Dates: start: 20120521
  5. PEGASYS [Concomitant]
     Indication: HEPATITIS C
     Route: 058

REACTIONS (2)
  - INFLUENZA LIKE ILLNESS [None]
  - PYREXIA [None]
